FAERS Safety Report 7332397-7 (Version None)
Quarter: 2011Q1

REPORT INFORMATION
  Report Type: 
  Country: None (occurrence: None)
  Receive Date: 20110304
  Receipt Date: 20110228
  Transmission Date: 20110831
  Serious: Yes (Hospitalization)
  Sender: FDA-Public Use
  Company Number: B0703552A

PATIENT
  Age: 3 Year
  Sex: Female
  Weight: 12 kg

DRUGS (1)
  1. ZINACEF [Suspect]
     Indication: ASTHMA
     Route: 042
     Dates: start: 20110224, end: 20110224

REACTIONS (5)
  - CHILLS [None]
  - RESPIRATORY ACIDOSIS [None]
  - LARYNGOSPASM [None]
  - DYSPNOEA [None]
  - BODY TEMPERATURE INCREASED [None]
